FAERS Safety Report 14475865 (Version 1)
Quarter: 2018Q1

REPORT INFORMATION
  Report Type: Spontaneous
  Country: US (occurrence: US)
  Receive Date: 20180201
  Receipt Date: 20180201
  Transmission Date: 20180509
  Serious: No
  Sender: FDA-Public Use
  Company Number: US-TOLMAR, INC.-TOLG20180035

PATIENT
  Sex: Female

DRUGS (1)
  1. CALCIPOTRIENE. [Suspect]
     Active Substance: CALCIPOTRIENE
     Indication: PSORIASIS
     Dosage: THIN APPLICATION TO LEFT ARM FROM SHOULDER TO ELBOW
     Route: 061
     Dates: start: 201801, end: 201801

REACTIONS (3)
  - Rash [Recovering/Resolving]
  - Application site pain [Recovering/Resolving]
  - Product substitution error [None]

NARRATIVE: CASE EVENT DATE: 201801
